FAERS Safety Report 4599344-2 (Version None)
Quarter: 2005Q1

REPORT INFORMATION
  Report Type: 
  Country: None (occurrence: None)
  Receive Date: 20050302
  Receipt Date: 20050302
  Transmission Date: 20050727
  Serious: Yes (Other)
  Sender: FDA-Public Use
  Company Number: None

PATIENT

DRUGS (1)
  1. RYTHMOL [Suspect]
     Indication: ATRIAL FIBRILLATION
     Dosage: 225 MG BID
     Dates: start: 19980101

REACTIONS (3)
  - ATRIAL FIBRILLATION [None]
  - DISEASE RECURRENCE [None]
  - PHARMACEUTICAL PRODUCT COMPLAINT [None]
